FAERS Safety Report 6120596-1 (Version None)
Quarter: 2009Q1

REPORT INFORMATION
  Report Type: 
  Country: None (occurrence: None)
  Receive Date: 20090312
  Receipt Date: 20090312
  Transmission Date: 20090719
  Serious: Yes (Other)
  Sender: FDA-Public Use
  Company Number: None

PATIENT
  Sex: Female

DRUGS (1)
  1. TENORMIN [Suspect]
     Dosage: 50 MG BID

REACTIONS (2)
  - CARDIAC DISORDER [None]
  - PRODUCT QUALITY ISSUE [None]
